FAERS Safety Report 12257382 (Version 1)
Quarter: 2016Q2

REPORT INFORMATION
  Report Type: Report from Study
  Country: BR (occurrence: BR)
  Receive Date: 20160412
  Receipt Date: 20160412
  Transmission Date: 20160815
  Serious: Yes (Hospitalization)
  Sender: FDA-Public Use
  Company Number: PHHY2016BR047709

PATIENT
  Age: 43 Year
  Sex: Female
  Weight: 65 kg

DRUGS (2)
  1. EXJADE [Suspect]
     Active Substance: DEFERASIROX
     Indication: SICKLE CELL ANAEMIA
     Dosage: UNK
     Route: 065
  2. EXJADE [Suspect]
     Active Substance: DEFERASIROX
     Dosage: 25 MG/KG (3 TABLETS OF 500 MG), QD
     Route: 048

REACTIONS (5)
  - Pyrexia [Unknown]
  - Abdominal pain [Unknown]
  - Abdominal distension [Unknown]
  - Dengue fever [Unknown]
  - Pain [Unknown]

NARRATIVE: CASE EVENT DATE: 20160331
